FAERS Safety Report 10784487 (Version 1)
Quarter: 2015Q1

REPORT INFORMATION
  Report Type: Spontaneous
  Country: US (occurrence: None)
  Receive Date: 20150209
  Receipt Date: 20150209
  Transmission Date: 20150721
  Serious: Yes (Hospitalization, Disabling, Other)
  Sender: FDA-Public Use
  Company Number: None

PATIENT
  Age: 40 Year
  Sex: Female
  Weight: 47.63 kg

DRUGS (2)
  1. BACTRIM DS (SEPTRA) 800 MG, 160 MG GENERIC [Suspect]
     Active Substance: SULFAMETHOXAZOLE\TRIMETHOPRIM
     Indication: UPPER RESPIRATORY TRACT INFECTION
     Route: 048
     Dates: start: 20141231, end: 20150107
  2. BACTRIM DS (SEPTRA) 800 MG, 160 MG GENERIC [Suspect]
     Active Substance: SULFAMETHOXAZOLE\TRIMETHOPRIM
     Indication: URINARY TRACT INFECTION
     Route: 048
     Dates: start: 20141231, end: 20150107

REACTIONS (5)
  - Influenza like illness [None]
  - Cardiac murmur [None]
  - Skin discolouration [None]
  - Palpitations [None]
  - Stevens-Johnson syndrome [None]

NARRATIVE: CASE EVENT DATE: 20150110
